FAERS Safety Report 14180916 (Version 1)
Quarter: 2017Q4

REPORT INFORMATION
  Report Type: Spontaneous
  Country: CH (occurrence: CH)
  Receive Date: 20171111
  Receipt Date: 20171111
  Transmission Date: 20180321
  Serious: Yes (Hospitalization, Other)
  Sender: FDA-Public Use
  Company Number: CH-SA-2017SA219071

PATIENT
  Sex: Male
  Weight: 3.08 kg

DRUGS (9)
  1. STILNOX [Suspect]
     Active Substance: ZOLPIDEM TARTRATE
     Route: 064
     Dates: start: 2016
  2. ABILIFY [Suspect]
     Active Substance: ARIPIPRAZOLE
     Route: 064
     Dates: start: 2016
  3. DAFALGAN [Suspect]
     Active Substance: ACETAMINOPHEN
     Route: 064
     Dates: start: 201611
  4. LAMICTAL [Suspect]
     Active Substance: LAMOTRIGINE
     Route: 064
     Dates: start: 2016
  5. TEMESTA (LORAZEPAM) [Suspect]
     Active Substance: LORAZEPAM
     Dosage: 2016
     Route: 064
     Dates: start: 201611
  6. SEROQUEL [Suspect]
     Active Substance: QUETIAPINE FUMARATE
     Route: 064
     Dates: start: 2016
  7. LYRICA [Suspect]
     Active Substance: PREGABALIN
     Dosage: 2016
     Route: 064
     Dates: start: 201611
  8. BRUFEN [Suspect]
     Active Substance: IBUPROFEN
     Route: 064
     Dates: start: 201611
  9. CIPRALEX [Suspect]
     Active Substance: ESCITALOPRAM OXALATE
     Route: 064
     Dates: start: 2016

REACTIONS (2)
  - Hypoglycaemia neonatal [Recovered/Resolved]
  - Foetal exposure during pregnancy [Unknown]

NARRATIVE: CASE EVENT DATE: 20170616
